FAERS Safety Report 4636602-7 (Version None)
Quarter: 2005Q2

REPORT INFORMATION
  Report Type: 
  Country: None (occurrence: None)
  Receive Date: 20050415
  Receipt Date: 20050404
  Transmission Date: 20051028
  Serious: Yes (Hospitalization)
  Sender: FDA-Public Use
  Company Number: PHRM2005FR01209

PATIENT
  Age: 44 Year
  Sex: Female

DRUGS (5)
  1. ZOMETA [Suspect]
     Indication: METASTASES TO BONE
     Dosage: 4 MG, QMO
     Route: 042
     Dates: start: 20041112, end: 20050311
  2. TAXOL [Suspect]
     Indication: METASTASES TO BONE
     Dosage: 80 MG, QW
     Route: 042
     Dates: start: 20041014, end: 20050311
  3. DI-ANTALVIC [Concomitant]
  4. SKENAN [Concomitant]
  5. CORTICOSTEROID NOS [Concomitant]
     Dates: start: 20041201

REACTIONS (7)
  - ANGINA PECTORIS [None]
  - APPLICATION SITE OEDEMA [None]
  - DERMATITIS [None]
  - DRUG INTERACTION [None]
  - ERYTHEMA [None]
  - INFLAMMATION [None]
  - MECHANICAL COMPLICATION OF IMPLANT [None]
